FAERS Safety Report 24228226 (Version 1)
Quarter: 2024Q3

REPORT INFORMATION
  Report Type: Spontaneous
  Country: NL (occurrence: NL)
  Receive Date: 20240820
  Receipt Date: 20240820
  Transmission Date: 20241016
  Serious: Yes (Life-Threatening, Hospitalization, Other)
  Sender: SANOFI AVENTIS
  Company Number: None

PATIENT
  Age: 74 Year
  Sex: Male
  Weight: 93.2 kg

DRUGS (4)
  1. OXALIPLATIN [Suspect]
     Active Substance: OXALIPLATIN
     Indication: Pancreatic carcinoma
     Dosage: 180 MG;COURSE OF TREATMENT, 180 MG
     Dates: start: 20240718
  2. FOLIC ACID [Suspect]
     Active Substance: FOLIC ACID
     Indication: Pancreatic carcinoma
     Dosage: 846 MG;COURSE OF TREATMENT, 846 MG
     Dates: start: 20240718
  3. FLUOROURACIL [Suspect]
     Active Substance: FLUOROURACIL
     Indication: Pancreatic carcinoma
     Dosage: 5073 MG;COURSE OF TREATMENT, 5073 MG
     Dates: start: 20240718
  4. IRINOTECAN [Suspect]
     Active Substance: IRINOTECAN
     Indication: Pancreatic carcinoma
     Dosage: 317 MG;COURSE OF TREATMENT, 317 MG
     Dates: start: 20240718

REACTIONS (2)
  - Colitis [Not Recovered/Not Resolved]
  - Ileus paralytic [Not Recovered/Not Resolved]

NARRATIVE: CASE EVENT DATE: 20240727
